FAERS Safety Report 25934345 (Version 1)
Quarter: 2025Q4

REPORT INFORMATION
  Report Type: Spontaneous
  Country: CA (occurrence: CA)
  Receive Date: 20251017
  Receipt Date: 20251017
  Transmission Date: 20260117
  Serious: Yes (Death)
  Sender: ROCHE
  Company Number: CA-ROCHE-10000410577

PATIENT

DRUGS (1)
  1. ITOVEBI [Suspect]
     Active Substance: INAVOLISIB
     Indication: Diabetes mellitus
     Route: 065

REACTIONS (1)
  - Ketoacidosis [Fatal]
